FAERS Safety Report 5463353-1 (Version None)
Quarter: 2007Q3

REPORT INFORMATION
  Report Type: 
  Country: None (occurrence: None)
  Receive Date: 20070920
  Receipt Date: 20070913
  Transmission Date: 20080115
  Serious: Yes (Disabling)
  Sender: FDA-Public Use
  Company Number: GR-ELI_LILLY_AND_COMPANY-GR200709002514

PATIENT
  Age: 60 Year
  Sex: Male

DRUGS (1)
  1. TADALAFIL [Suspect]
     Dosage: 20 MG, DAILY (1/D)
     Route: 048

REACTIONS (2)
  - MYALGIA [None]
  - RESTLESSNESS [None]
